FAERS Safety Report 7126420-2 (Version None)
Quarter: 2010Q4

REPORT INFORMATION
  Report Type: 
  Country: None (occurrence: None)
  Receive Date: 20101129
  Receipt Date: 20101119
  Transmission Date: 20110411
  Serious: Yes (Other)
  Sender: FDA-Public Use
  Company Number: US-ABBOTT-10P-163-0686719-00

PATIENT
  Sex: Female
  Weight: 67.646 kg

DRUGS (2)
  1. LUPRON DEPOT [Suspect]
     Indication: ENDOMETRIOSIS
     Dates: start: 20080101
  2. TOPROL-XL [Concomitant]
     Indication: HYPERTENSION

REACTIONS (3)
  - ADNEXA UTERI PAIN [None]
  - ANAL FISTULA [None]
  - PROCTALGIA [None]
